FAERS Safety Report 6149942-X (Version None)
Quarter: 2009Q2

REPORT INFORMATION
  Report Type: 
  Country: None (occurrence: None)
  Receive Date: 20090409
  Receipt Date: 20090402
  Transmission Date: 20091009
  Serious: Yes (Hospitalization, Congenital Anomaly)
  Sender: FDA-Public Use
  Company Number: A0681241A

PATIENT
  Sex: Female
  Weight: 4.8 kg

DRUGS (5)
  1. PAXIL [Suspect]
     Indication: ANXIETY
     Dosage: 20MG PER DAY
     Dates: start: 20031201, end: 20060101
  2. PAROXETINE HYDROCHLORIDE [Suspect]
     Indication: DEPRESSION
  3. VITAMIN TAB [Concomitant]
  4. NEXIUM [Concomitant]
  5. CHROMAGEN FORTE [Concomitant]

REACTIONS (5)
  - ANAL ATRESIA [None]
  - DRUG EXPOSURE DURING PREGNANCY [None]
  - OESOPHAGEAL ATRESIA [None]
  - PATENT DUCTUS ARTERIOSUS [None]
  - VACTERL SYNDROME [None]
